FAERS Safety Report 10989360 (Version 2)
Quarter: 2015Q2

REPORT INFORMATION
  Report Type: Spontaneous
  Country: US (occurrence: US)
  Receive Date: 20150406
  Receipt Date: 20150504
  Transmission Date: 20150821
  Serious: Yes (Hospitalization)
  Sender: FDA-Public Use
  Company Number: US-PFIZER INC-2015116868

PATIENT
  Age: 69 Year
  Sex: Female

DRUGS (1)
  1. SUTENT [Suspect]
     Active Substance: SUNITINIB MALATE
     Indication: RENAL CELL CARCINOMA
     Dosage: 50 MG, CYCLIC (12.5 MG, 4 CAPSULES DAILY FOR 14 DAYS ON 7 DAYS OFF (ONCE AT THE SAME TIME EACH DAY))
     Route: 048

REACTIONS (7)
  - Pyrexia [Unknown]
  - Nausea [Unknown]
  - Oral pain [Unknown]
  - Vomiting [Unknown]
  - Decreased appetite [Unknown]
  - Fall [Recovered/Resolved]
  - Gastroenteritis [Unknown]
